FAERS Safety Report 5309759-2 (Version None)
Quarter: 2007Q2

REPORT INFORMATION
  Report Type: 
  Country: None (occurrence: None)
  Receive Date: 20070427
  Receipt Date: 20061117
  Transmission Date: 20071010
  Serious: No
  Sender: FDA-Public Use
  Company Number: US-GLAXOSMITHKLINE-A0627954A

PATIENT
  Sex: Female

DRUGS (3)
  1. ZOFRAN [Suspect]
     Indication: VERTIGO
     Route: 048
  2. ZOFRAN [Suspect]
     Dosage: 4MG AS REQUIRED
     Route: 048
  3. UNSPECIFIED MEDICATION [Concomitant]

REACTIONS (1)
  - STOMACH DISCOMFORT [None]
